FAERS Safety Report 10470102 (Version 7)
Quarter: 2015Q4

REPORT INFORMATION
  Report Type: Spontaneous
  Country: US (occurrence: US)
  Receive Date: 20140923
  Receipt Date: 20151223
  Transmission Date: 20160304
  Serious: Yes (Death, Hospitalization, Other)
  Sender: FDA-Public Use
  Company Number: US-MERCK-1409USA010741

PATIENT
  Sex: Male
  Weight: 68.27 kg

DRUGS (1)
  1. JANUVIA [Suspect]
     Active Substance: SITAGLIPTIN PHOSPHATE
     Indication: TYPE 2 DIABETES MELLITUS
     Dosage: 100 MG, QD
     Route: 048
     Dates: start: 20090403, end: 20130518

REACTIONS (48)
  - Chronic kidney disease [Not Recovered/Not Resolved]
  - Deep vein thrombosis [Unknown]
  - Tinnitus [Unknown]
  - Hypercholesterolaemia [Unknown]
  - Benign neoplasm of prostate [Unknown]
  - Bladder outlet obstruction [Unknown]
  - Urinary retention [Recovered/Resolved]
  - Blood glucose increased [Recovered/Resolved]
  - Electrocardiogram abnormal [Unknown]
  - Atrial fibrillation [Unknown]
  - Road traffic accident [Unknown]
  - Cardiac aneurysm [Unknown]
  - Goitre [Unknown]
  - X-ray gastrointestinal tract abnormal [Unknown]
  - Hypertension [Unknown]
  - Osteoarthritis [Unknown]
  - Lumbar radiculopathy [Unknown]
  - Weight decreased [Unknown]
  - Plantar fasciitis [Unknown]
  - Neutropenia [Unknown]
  - Hypertonic bladder [Unknown]
  - Cataract operation [Unknown]
  - Pancreatic carcinoma metastatic [Fatal]
  - Pulmonary embolism [Unknown]
  - Blood pressure systolic increased [Recovered/Resolved]
  - Tobacco abuse [Unknown]
  - Prostatic specific antigen increased [Unknown]
  - Cerebrovascular accident [Unknown]
  - Cellulitis [Unknown]
  - Mitral valve incompetence [Unknown]
  - Benign prostatic hyperplasia [Unknown]
  - Proteinuria [Unknown]
  - Macular degeneration [Unknown]
  - Liver function test abnormal [Unknown]
  - Cellulitis [Unknown]
  - Prostatic disorder [Unknown]
  - Supraventricular tachycardia [Unknown]
  - Genitourinary tract neoplasm [Unknown]
  - Monoclonal gammopathy [Unknown]
  - Testicular atrophy [Unknown]
  - Deafness neurosensory [Unknown]
  - Pancreatitis [Unknown]
  - Diabetic neuropathy [Unknown]
  - Carotid bruit [Unknown]
  - Metastases to peritoneum [Unknown]
  - Blood glucose abnormal [Unknown]
  - Anaemia [Unknown]
  - Supraventricular extrasystoles [Unknown]

NARRATIVE: CASE EVENT DATE: 201306
